FAERS Safety Report 8298944-6 (Version None)
Quarter: 2012Q2

REPORT INFORMATION
  Report Type: 
  Country: None (occurrence: None)
  Receive Date: 20120419
  Receipt Date: 20120411
  Transmission Date: 20120825
  Serious: Yes (Other)
  Sender: FDA-Public Use
  Company Number: PHHY2012BR018731

PATIENT
  Sex: Male

DRUGS (10)
  1. CLOPIDOGREL [Concomitant]
     Dosage: 75 MG, UNK
     Dates: start: 20110401
  2. AZUKON [Concomitant]
     Indication: DIABETES MELLITUS
     Dosage: 30 MG, WHEN HE EXPERIENCED ALTERATION OF DIABETES
  3. DIOVAN HCT [Suspect]
     Dosage: 0.5 DFX (80/12.5 MG), DAILY
  4. SIMVASTATIN [Concomitant]
     Dosage: 20 MG, ONE TABLET AT NIGHT
  5. ASPIRIN [Concomitant]
     Indication: ANTICOAGULANT THERAPY
     Dosage: 100 MG, UNK
  6. PENTOXIFILINA [Concomitant]
     Dosage: 400 MG, UNK
  7. OMEPRAZOLE [Concomitant]
     Indication: GASTRIC DISORDER
     Dosage: 40 MG, UNK
  8. SELOQUIM [Concomitant]
     Indication: HEART RATE ABNORMAL
     Dosage: 0.5 DF X (100 MG), DAILY
     Dates: start: 20110201
  9. DIOVAN HCT [Suspect]
     Indication: HYPERTENSION
     Dosage: 1 DF X (320/25 MG), IN THE MORNING
     Dates: start: 20110201
  10. SUSTRATE [Concomitant]
     Indication: ANGINA PECTORIS
     Dosage: 10 MG, ONLY WHEN HE HAD PAIN
     Dates: start: 20110101

REACTIONS (4)
  - WRONG TECHNIQUE IN DRUG USAGE PROCESS [None]
  - ASTHENIA [None]
  - HYPOTENSION [None]
  - LIP AND/OR ORAL CAVITY CANCER [None]
